FAERS Safety Report 6466245-4 (Version None)
Quarter: 2009Q4

REPORT INFORMATION
  Report Type: 
  Country: None (occurrence: None)
  Receive Date: 20091202
  Receipt Date: 20091120
  Transmission Date: 20100525
  Serious: Yes (Other)
  Sender: FDA-Public Use
  Company Number: PHHY2009JP19519

PATIENT
  Sex: Female

DRUGS (12)
  1. AMN107 AMN+CAP [Suspect]
     Indication: CHRONIC MYELOID LEUKAEMIA
     Dosage: 800 MG/DAY
     Route: 048
     Dates: start: 20090428, end: 20090514
  2. AMN107 AMN+CAP [Suspect]
     Dosage: 800 MG/DAY
     Route: 048
     Dates: start: 20090522, end: 20090531
  3. AMN107 AMN+CAP [Suspect]
     Dosage: 800 MG/DAY
     Route: 048
     Dates: start: 20090609
  4. GLEEVEC [Suspect]
     Indication: CHRONIC MYELOID LEUKAEMIA
     Dosage: 600 MG/DAY
     Route: 048
     Dates: start: 20090402, end: 20090427
  5. ALLEGRA [Suspect]
     Indication: RASH
     Dosage: UNK
  6. LASIX [Concomitant]
     Indication: OEDEMA
     Dosage: 20 MG, UNK
     Route: 048
     Dates: start: 20090126, end: 20090824
  7. RESPLEN [Concomitant]
     Dosage: 60 MG, UNK
     Route: 048
     Dates: start: 20090601, end: 20090605
  8. POVIDONE IODINE [Concomitant]
     Dosage: UNK
     Route: 049
     Dates: start: 20090601, end: 20090605
  9. PL(NON-PYRINE COLD PREPARATION) [Concomitant]
     Dosage: 3 G, UNK
     Route: 048
     Dates: start: 20090601, end: 20090605
  10. RED BLOOD CELLS [Concomitant]
     Dosage: UNK
     Dates: start: 20090501
  11. DRUG THERAPY NOS [Concomitant]
     Indication: PROPHYLAXIS
     Dosage: 2 G, UNK
     Route: 048
     Dates: start: 20090223
  12. MUCOSTA [Concomitant]
     Dosage: 200 MG, UNK
     Route: 048
     Dates: start: 20090429, end: 20090522

REACTIONS (8)
  - ANAEMIA [None]
  - BLOOD ALKALINE PHOSPHATASE INCREASED [None]
  - BLOOD BILIRUBIN INCREASED [None]
  - ELECTROCARDIOGRAM QT PROLONGED [None]
  - GAMMA-GLUTAMYLTRANSFERASE INCREASED [None]
  - NASOPHARYNGITIS [None]
  - PYREXIA [None]
  - RASH ERYTHEMATOUS [None]
